FAERS Safety Report 5030455-3 (Version None)
Quarter: 2006Q2

REPORT INFORMATION
  Report Type: 
  Country: None (occurrence: None)
  Receive Date: 20060614
  Receipt Date: 20060529
  Transmission Date: 20061013
  Serious: Yes (Hospitalization)
  Sender: FDA-Public Use
  Company Number: 224279

PATIENT
  Age: 61 Year
  Sex: Female

DRUGS (13)
  1. HERCEPTIN [Suspect]
     Indication: BREAST CANCER METASTATIC
     Dosage: SEE IMAGE
     Route: 042
     Dates: start: 20060203
  2. HERCEPTIN [Suspect]
     Indication: BREAST CANCER METASTATIC
     Dosage: SEE IMAGE
     Route: 042
     Dates: start: 20060210
  3. TAXOL [Suspect]
     Indication: BREAST CANCER METASTATIC
     Dosage: 100 MG, 1/WEEK, INTRAVENOUS
     Route: 042
     Dates: start: 20060130, end: 20060317
  4. RESTAMIN (CHLORPHENIRAMINE MALEATE) [Concomitant]
  5. KYTRIL [Concomitant]
  6. DECADRON [Concomitant]
  7. ACETAMINOPHEN [Concomitant]
  8. SODIUM FERROUS CITRATE (SODIUM FERROUS CITRATE) [Concomitant]
  9. VOGLIBOSE [Concomitant]
  10. FOSFOMYCIN CALCIUM (FOSFOMYCIN) [Concomitant]
  11. LACTOBACILLUS ACIDOPHILLUS [Concomitant]
  12. MEDICATION [Concomitant]
  13. LOPERAMIDE HCL [Concomitant]

REACTIONS (8)
  - ACUTE RESPIRATORY DISTRESS SYNDROME [None]
  - ASPARTATE AMINOTRANSFERASE INCREASED [None]
  - BLOOD SODIUM DECREASED [None]
  - CARDIAC FAILURE [None]
  - CARDIOTOXICITY [None]
  - CYANOSIS [None]
  - HAEMATOCRIT DECREASED [None]
  - RESPIRATORY FAILURE [None]
